FAERS Safety Report 6312483-0 (Version None)
Quarter: 2009Q3

REPORT INFORMATION
  Report Type: 
  Country: None (occurrence: None)
  Receive Date: 20090813
  Receipt Date: 20090729
  Transmission Date: 20100115
  Serious: Yes (Hospitalization, Other)
  Sender: FDA-Public Use
  Company Number: SPV1-2009-01568

PATIENT
  Age: 75 Year
  Sex: Female

DRUGS (8)
  1. PENTASA [Suspect]
     Indication: IRRITABLE BOWEL SYNDROME
     Dosage: 4000 MG, 1X/DAY;QD, ORAL; 4000 MG, 1X/DAY;QD, ORAL; 2000 MG, 1X/DAY:QD, ORAL
     Route: 048
     Dates: end: 20070101
  2. PENTASA [Suspect]
     Indication: IRRITABLE BOWEL SYNDROME
     Dosage: 4000 MG, 1X/DAY;QD, ORAL; 4000 MG, 1X/DAY;QD, ORAL; 2000 MG, 1X/DAY:QD, ORAL
     Route: 048
     Dates: start: 20070101, end: 20090101
  3. PENTASA [Suspect]
     Indication: IRRITABLE BOWEL SYNDROME
     Dosage: 4000 MG, 1X/DAY;QD, ORAL; 4000 MG, 1X/DAY;QD, ORAL; 2000 MG, 1X/DAY:QD, ORAL
     Route: 048
     Dates: start: 20090101
  4. LOMOTIL /00034001/ (ATROPINE SULFATE, DIPHENOXYLATE HYDROCHLORIDE) [Concomitant]
  5. REMICADE [Concomitant]
  6. COZAAR [Concomitant]
  7. COLESTIPOL HYDROCHLORIDE (COLESTIPOL HYDROCHORIDE) [Concomitant]
  8. POTASSIUM (POTASSIUM) [Concomitant]

REACTIONS (9)
  - ANXIETY [None]
  - CHRONIC LYMPHOCYTIC LEUKAEMIA [None]
  - CROHN'S DISEASE [None]
  - DIABETES MELLITUS [None]
  - DIARRHOEA [None]
  - LIP AND/OR ORAL CAVITY CANCER [None]
  - NEOPLASM RECURRENCE [None]
  - OFF LABEL USE [None]
  - SMALL INTESTINAL OBSTRUCTION [None]
